FAERS Safety Report 12568757 (Version 1)
Quarter: 2016Q3

REPORT INFORMATION
  Report Type: Spontaneous
  Country: US (occurrence: None)
  Receive Date: 20160718
  Receipt Date: 20160718
  Transmission Date: 20161109
  Serious: Yes (Other)
  Sender: FDA-Public Use
  Company Number: None

PATIENT
  Age: 39 Year
  Sex: Male
  Weight: 103.87 kg

DRUGS (1)
  1. LAMOTRIGINE, 200MG [Suspect]
     Active Substance: LAMOTRIGINE
     Indication: BIPOLAR DISORDER
     Route: 048
     Dates: start: 20160605, end: 20160715

REACTIONS (9)
  - Insomnia [None]
  - Apathy [None]
  - Product substitution issue [None]
  - Mood swings [None]
  - Fatigue [None]
  - Memory impairment [None]
  - Condition aggravated [None]
  - Depression [None]
  - Activities of daily living impaired [None]

NARRATIVE: CASE EVENT DATE: 20160715
